FAERS Safety Report 9253050 (Version 1)
Quarter: 2013Q2

REPORT INFORMATION
  Report Type: Spontaneous
  Country: US (occurrence: US)
  Receive Date: 20130424
  Receipt Date: 20130424
  Transmission Date: 20140414
  Serious: No
  Sender: FDA-Public Use
  Company Number: US-009507513-1208USA001283

PATIENT
  Sex: Male

DRUGS (6)
  1. PEGINTRON [Suspect]
     Indication: HEPATITIS C
  2. RIBAPAK [Suspect]
     Indication: HEPATITIS C
     Dosage: 600 MG, UNK
     Route: 048
  3. TELAPREVIR [Suspect]
     Indication: HEPATITIS C
  4. CLARITIN [Concomitant]
  5. ATIVAN [Concomitant]
  6. HYDROCHLOROT [Concomitant]

REACTIONS (4)
  - Pain [Unknown]
  - Constipation [Unknown]
  - Fatigue [Unknown]
  - Influenza like illness [Unknown]
